FAERS Safety Report 20364942 (Version 1)
Quarter: 2022Q1

REPORT INFORMATION
  Report Type: Report from Study
  Country: BR (occurrence: BR)
  Receive Date: 20220122
  Receipt Date: 20220122
  Transmission Date: 20220423
  Serious: Yes (Other)
  Sender: FDA-Public Use
  Company Number: BR-TAKEDA-2022TUS003786

PATIENT
  Sex: Male

DRUGS (1)
  1. ANTI-INHIBITOR COAGULANT COMPLEX [Suspect]
     Active Substance: ANTI-INHIBITOR COAGULANT COMPLEX
     Indication: Haemophilia
     Dosage: UNK
     Route: 042

REACTIONS (4)
  - Haemarthrosis [Recovered/Resolved]
  - Drug ineffective [Recovered/Resolved]
  - Road traffic accident [Recovered/Resolved]
  - Joint injury [Recovered/Resolved]
